FAERS Safety Report 10019357 (Version 1)
Quarter: 2014Q1

REPORT INFORMATION
  Report Type: Spontaneous
  Country: US (occurrence: US)
  Receive Date: 20140318
  Receipt Date: 20140318
  Transmission Date: 20141002
  Serious: No
  Sender: FDA-Public Use
  Company Number: US-009507513-1403USA007459

PATIENT
  Age: 55 Year
  Sex: Female

DRUGS (2)
  1. JANUVIA [Suspect]
     Indication: TYPE 2 DIABETES MELLITUS
     Dosage: 100 MG, QD
     Route: 048
     Dates: start: 201306, end: 201312
  2. MK-9378 [Concomitant]
     Dosage: 1000 MG, BID, ONCE IN MORNING AND ONCE IN EVENING, DAILY DOSE OF 2000 MG
     Route: 048

REACTIONS (1)
  - Drug ineffective [Recovered/Resolved with Sequelae]
